FAERS Safety Report 14492410 (Version 5)
Quarter: 2018Q2

REPORT INFORMATION
  Report Type: Spontaneous
  Country: US (occurrence: US)
  Receive Date: 20180206
  Receipt Date: 20180517
  Transmission Date: 20180711
  Serious: Yes (Other)
  Sender: FDA-Public Use
  Company Number: US-PFIZER INC-2018046507

PATIENT
  Age: 70 Year
  Sex: Female

DRUGS (1)
  1. IBRANCE [Suspect]
     Active Substance: PALBOCICLIB
     Dosage: UNK
     Dates: start: 20180125

REACTIONS (9)
  - Neoplasm progression [Unknown]
  - Pulmonary thrombosis [Unknown]
  - Hyperchlorhydria [Unknown]
  - Hypersomnia [Unknown]
  - Abdominal discomfort [Unknown]
  - Increased appetite [Unknown]
  - Nausea [Unknown]
  - Constipation [Unknown]
  - Full blood count increased [Unknown]

NARRATIVE: CASE EVENT DATE: 2018
